FAERS Safety Report 25909098 (Version 1)
Quarter: 2025Q4

REPORT INFORMATION
  Report Type: Spontaneous
  Country: US (occurrence: US)
  Receive Date: 20251011
  Receipt Date: 20251011
  Transmission Date: 20260117
  Serious: No
  Sender: Kenvue
  Company Number: US-KENVUE-20250909053

PATIENT
  Sex: Male

DRUGS (2)
  1. TYLENOL [Suspect]
     Active Substance: ACETAMINOPHEN
     Indication: Neuropathy peripheral
     Dosage: UNK, TWO OR THREE AND A HALF MONTHS
     Route: 065
     Dates: start: 2025
  2. IBUPROFEN [Suspect]
     Active Substance: IBUPROFEN
     Indication: Neuropathy peripheral
     Dosage: UNK, USED FOR ABOUT TWO OR THREE AND A HALF MONTHS
     Route: 065
     Dates: start: 2025

REACTIONS (3)
  - Peripheral swelling [Unknown]
  - Product use in unapproved indication [Unknown]
  - Therapeutic response unexpected [Unknown]

NARRATIVE: CASE EVENT DATE: 20250101
